FAERS Safety Report 19053799 (Version 1)
Quarter: 2021Q1

REPORT INFORMATION
  Report Type: Spontaneous
  Country: US (occurrence: US)
  Receive Date: 20210324
  Receipt Date: 20210324
  Transmission Date: 20210420
  Serious: Yes (Other)
  Sender: FDA-Public Use
  Company Number: US-ASTRAZENECA-2021A182503

PATIENT
  Age: 70 Year
  Sex: Female
  Weight: 78.5 kg

DRUGS (12)
  1. DALIRESP [Suspect]
     Active Substance: ROFLUMILAST
     Indication: CHRONIC OBSTRUCTIVE PULMONARY DISEASE
     Route: 048
     Dates: end: 20210316
  2. ALBUTEROL INHALER [Concomitant]
     Active Substance: ALBUTEROL
     Dosage: AS REQUIRED
     Route: 055
  3. MODERNA COVID?19 VACCINE [Suspect]
     Active Substance: CX-024414
     Route: 065
     Dates: start: 20210121, end: 20210121
  4. ASPRIRIN [Concomitant]
  5. DALIRESP [Suspect]
     Active Substance: ROFLUMILAST
     Indication: CHRONIC OBSTRUCTIVE PULMONARY DISEASE
     Route: 048
     Dates: start: 2019
  6. METOPROLOL TARTRATE. [Suspect]
     Active Substance: METOPROLOL TARTRATE
     Indication: HEART RATE
     Dosage: ONE HALF OF A 25MG PILL TWICE A DAY
     Route: 065
  7. ADVAIR HFA [Concomitant]
     Active Substance: FLUTICASONE PROPIONATE\SALMETEROL XINAFOATE
     Route: 055
  8. MULTIVITAMIN [Concomitant]
     Active Substance: VITAMINS
  9. MODERNA COVID?19 VACCINE [Suspect]
     Active Substance: CX-024414
     Route: 065
     Dates: start: 20210218
  10. CACIUM [Concomitant]
  11. VITAMIN D [Concomitant]
     Active Substance: VITAMIN D NOS
  12. INCRUSE INHALER [Concomitant]
     Route: 055

REACTIONS (6)
  - Heart rate increased [Recovered/Resolved]
  - Intentional product misuse [Unknown]
  - Dyspnoea [Not Recovered/Not Resolved]
  - Body height decreased [Not Recovered/Not Resolved]
  - Upper limb fracture [Unknown]
  - Joint dislocation [Unknown]

NARRATIVE: CASE EVENT DATE: 2019
